FAERS Safety Report 14045693 (Version 3)
Quarter: 2017Q4

REPORT INFORMATION
  Report Type: Spontaneous
  Country: US (occurrence: US)
  Receive Date: 20171005
  Receipt Date: 20171207
  Transmission Date: 20180321
  Serious: Yes (Other)
  Sender: FDA-Public Use
  Company Number: US-INCYTE CORPORATION-2017IN008284

PATIENT

DRUGS (1)
  1. JAKAFI [Suspect]
     Active Substance: RUXOLITINIB
     Dosage: 15 MG, QOD
     Route: 048
     Dates: start: 20151201

REACTIONS (7)
  - Urinary tract infection [Unknown]
  - Epididymitis [Unknown]
  - Orchitis [Unknown]
  - Tooth infection [Unknown]
  - Testicular pain [Unknown]
  - Cystitis [Unknown]
  - Testicular swelling [Unknown]
